FAERS Safety Report 21313304 (Version 1)
Quarter: 2022Q3

REPORT INFORMATION
  Report Type: Spontaneous
  Country: US (occurrence: None)
  Receive Date: 20220909
  Receipt Date: 20220909
  Transmission Date: 20221026
  Serious: Yes (unspecified)
  Sender: FDA-Public Use
  Company Number: None

PATIENT
  Sex: 0

DRUGS (1)
  1. RITUXAN [Suspect]
     Active Substance: RITUXIMAB

REACTIONS (4)
  - Chills [None]
  - Hypertension [None]
  - Respiratory rate increased [None]
  - Infusion related reaction [None]

NARRATIVE: CASE EVENT DATE: 20220723
